FAERS Safety Report 4908177-6 (Version None)
Quarter: 2006Q1

REPORT INFORMATION
  Report Type: 
  Country: None (occurrence: None)
  Receive Date: 20060210
  Receipt Date: 20060203
  Transmission Date: 20060701
  Serious: No
  Sender: FDA-Public Use
  Company Number: US-JNJFOC-20060201066

PATIENT

DRUGS (1)
  1. LEVAQUIN [Suspect]
     Indication: URINARY TRACT INFECTION

REACTIONS (1)
  - TENDONITIS [None]
